FAERS Safety Report 20190563 (Version 1)
Quarter: 2021Q4

REPORT INFORMATION
  Report Type: Spontaneous
  Country: US (occurrence: None)
  Receive Date: 20211216
  Receipt Date: 20211216
  Transmission Date: 20220303
  Serious: Yes (Other)
  Sender: FDA-Public Use
  Company Number: US-MDD US Operations-2020SUP00817

PATIENT
  Sex: Female

DRUGS (2)
  1. TROKENDI XR [Suspect]
     Active Substance: TOPIRAMATE
     Indication: Migraine
  2. TROKENDI XR [Suspect]
     Active Substance: TOPIRAMATE

REACTIONS (4)
  - Nephrolithiasis [Unknown]
  - Suicidal ideation [Unknown]
  - Ageusia [Unknown]
  - Decreased appetite [Unknown]
